FAERS Safety Report 9491421 (Version 2)
Quarter: 2013Q1

REPORT INFORMATION
  Report Type: Not Available
  Country: US (occurrence: US)
  Receive Date: 20120619
  Receipt Date: 20120619
  Transmission Date: 20140127
  Serious: Yes (Hospitalization)
  Sender: FDA-Public Use
  Company Number: US-LUNDBECK-DKLU1071011

PATIENT
  Age: 14 None
  Sex: Male

DRUGS (2)
  1. CLOBAZAM [Suspect]
     Indication: LENNOX-GASTAUT SYNDROME
     Route: 048
     Dates: start: 20060616, end: 2011
  2. CLOBAZAM [Suspect]
     Route: 048
     Dates: start: 201104, end: 2011

REACTIONS (2)
  - Haematemesis [Recovered/Resolved]
  - Dysphagia [Recovered/Resolved]
